FAERS Safety Report 24251559 (Version 5)
Quarter: 2024Q4

REPORT INFORMATION
  Report Type: Spontaneous
  Country: US (occurrence: US)
  Receive Date: 20240827
  Receipt Date: 20241014
  Transmission Date: 20250115
  Serious: No
  Sender: NOVARTIS
  Company Number: US-002147023-NVSC2024US170956

PATIENT
  Sex: Female

DRUGS (1)
  1. COSENTYX [Suspect]
     Active Substance: SECUKINUMAB
     Indication: Product used for unknown indication
     Dosage: UNK, Q2W (INJECTION)
     Route: 065

REACTIONS (8)
  - Injection site pain [Unknown]
  - Anxiety [Unknown]
  - Incorrect dose administered [Unknown]
  - Inflammation [Unknown]
  - Device leakage [Unknown]
  - Furuncle [Unknown]
  - Irritability [Unknown]
  - Wrong technique in device usage process [Unknown]
